FAERS Safety Report 5822506-0 (Version None)
Quarter: 2008Q3

REPORT INFORMATION
  Report Type: 
  Country: None (occurrence: None)
  Receive Date: 20080725
  Receipt Date: 20071227
  Transmission Date: 20090109
  Serious: No
  Sender: FDA-Public Use
  Company Number: US-AMGEN-KDL251472

PATIENT
  Sex: Female
  Weight: 70.4 kg

DRUGS (8)
  1. PROCRIT [Suspect]
     Indication: ANAEMIA OF MALIGNANT DISEASE
  2. LISINOPRIL [Concomitant]
  3. ASPIRIN [Concomitant]
  4. PRENATE 90 [Concomitant]
  5. FERGON [Concomitant]
  6. POTASSIUM CHLORIDE [Concomitant]
  7. ZOMETA [Concomitant]
  8. LIPITOR [Concomitant]

REACTIONS (3)
  - BACK PAIN [None]
  - DYSPNOEA EXERTIONAL [None]
  - HAEMOGLOBIN DECREASED [None]
